FAERS Safety Report 9506732 (Version 2)
Quarter: 2013Q4

REPORT INFORMATION
  Report Type: Report from Study
  Country: FR (occurrence: FR)
  Receive Date: 20130908
  Receipt Date: 20131017
  Transmission Date: 20140711
  Serious: No
  Sender: FDA-Public Use
  Company Number: PHHY2013FR097644

PATIENT
  Age: 78 Year
  Sex: Female

DRUGS (15)
  1. ACLASTA/ZOLEDRONATE [Suspect]
     Indication: OSTEOPOROSIS
     Dosage: UNK
     Route: 042
     Dates: start: 20110512
  2. ACLASTA/ZOLEDRONATE [Suspect]
     Dosage: UNK
     Route: 042
     Dates: start: 20120507
  3. LEVOTHYROX [Concomitant]
     Dosage: UNK
     Dates: start: 2009
  4. DAFALGAN [Concomitant]
     Dosage: UNK
     Dates: start: 1990
  5. LYSANXIA [Concomitant]
     Dosage: UNK
     Dates: start: 1960, end: 2012
  6. ENDOTELON [Concomitant]
     Dosage: UNK
     Dates: start: 1960, end: 2012
  7. SEROPLEX [Concomitant]
     Dosage: UNK
     Dates: start: 1990, end: 2012
  8. GAVISCON                                /GFR/ [Concomitant]
     Dosage: UNK
     Dates: start: 1990, end: 2012
  9. ART 50 [Concomitant]
     Dosage: UNK
     Dates: start: 1995, end: 2012
  10. AERIUS [Concomitant]
     Dosage: UNK
     Dates: end: 2012
  11. FIXICAL [Concomitant]
     Dosage: UNK
     Dates: start: 2011
  12. JOUVENCE DE L^ABBE SOURY [Concomitant]
     Dosage: UNK
     Dates: start: 2012, end: 2012
  13. ALPRAZOLAM [Concomitant]
     Dosage: UNK
     Dates: start: 2012
  14. CORTISONE [Concomitant]
     Dosage: UNK
     Dates: start: 2012, end: 2012
  15. CITALOPRAM [Concomitant]
     Dosage: UNK
     Dates: start: 2012

REACTIONS (2)
  - Pelvic fracture [Recovering/Resolving]
  - Wrist fracture [Recovering/Resolving]
